FAERS Safety Report 13352013 (Version 1)
Quarter: 2017Q1

REPORT INFORMATION
  Report Type: Spontaneous
  Country: US (occurrence: US)
  Receive Date: 20170320
  Receipt Date: 20170320
  Transmission Date: 20170429
  Serious: No
  Sender: FDA-Public Use
  Company Number: US-SA-2016SA062795

PATIENT
  Age: 91 Year
  Sex: Female

DRUGS (3)
  1. NASACORT ALLERGY 24HR [Suspect]
     Active Substance: TRIAMCINOLONE ACETONIDE
     Indication: UPPER-AIRWAY COUGH SYNDROME
     Dosage: TAKES AT NIGHT
     Route: 065
  2. NASACORT ALLERGY 24HR [Suspect]
     Active Substance: TRIAMCINOLONE ACETONIDE
     Indication: LACRIMATION INCREASED
     Dosage: TAKES AT NIGHT
     Route: 065
  3. NASACORT ALLERGY 24HR [Suspect]
     Active Substance: TRIAMCINOLONE ACETONIDE
     Indication: EYE PRURITUS
     Dosage: TAKES AT NIGHT
     Route: 065

REACTIONS (1)
  - Drug ineffective [Unknown]
